FAERS Safety Report 5703956-X (Version None)
Quarter: 2008Q2

REPORT INFORMATION
  Report Type: 
  Country: None (occurrence: None)
  Receive Date: 20080409
  Receipt Date: 20080325
  Transmission Date: 20081010
  Serious: Yes (Other)
  Sender: FDA-Public Use
  Company Number: B0515081A

PATIENT
  Age: 5 Year
  Sex: Male

DRUGS (3)
  1. MELPHALAN [Suspect]
     Indication: BONE MARROW TRANSPLANT
  2. CARBOPLATIN [Suspect]
     Indication: BONE MARROW TRANSPLANT
  3. ETOPOSIDE [Suspect]
     Indication: BONE MARROW TRANSPLANT

REACTIONS (1)
  - CRYPTOGENIC ORGANISING PNEUMONIA [None]
